FAERS Safety Report 5273049-7 (Version None)
Quarter: 2007Q1

REPORT INFORMATION
  Report Type: 
  Country: None (occurrence: None)
  Receive Date: 20070322
  Receipt Date: 20070311
  Transmission Date: 20070707
  Serious: Yes (Hospitalization)
  Sender: FDA-Public Use
  Company Number: US-SHR-US-2007-009311

PATIENT
  Age: 42 Year
  Sex: Female

DRUGS (1)
  1. BETASERON [Suspect]
     Dosage: 8 MIU, EVERY 2D
     Route: 058
     Dates: start: 20060409

REACTIONS (6)
  - BLISTER [None]
  - CARDIAC INFECTION [None]
  - CYST [None]
  - GASTRIC ULCER [None]
  - MULTIPLE SCLEROSIS [None]
  - WOUND [None]
